FAERS Safety Report 9985065 (Version 1)
Quarter: 2014Q1

REPORT INFORMATION
  Report Type: Report from Study
  Country: US (occurrence: US)
  Receive Date: 20140307
  Receipt Date: 20140307
  Transmission Date: 20141002
  Serious: No
  Sender: FDA-Public Use
  Company Number: US-ABBVIE-13P-163-1184388-00

PATIENT
  Age: 50 Year
  Sex: Female
  Weight: 62.2 kg

DRUGS (7)
  1. HUMIRA [Suspect]
     Indication: CROHN^S DISEASE
     Dates: start: 20131220, end: 20131220
  2. HUMIRA [Suspect]
     Dates: start: 20140103, end: 20140103
  3. HUMIRA [Suspect]
  4. TOPAMAX [Concomitant]
     Indication: PRODUCT USED FOR UNKNOWN INDICATION
     Dosage: BED TIME
  5. IMITREX [Concomitant]
     Indication: MIGRAINE
     Dosage: MAY TAKE ONE MORE AFTER 2 HOURS
  6. KLONOPIN [Concomitant]
     Indication: PRODUCT USED FOR UNKNOWN INDICATION
     Dosage: 1/2 TAB-BED TIME
  7. NEURONTIN [Concomitant]
     Indication: PARALYSIS

REACTIONS (17)
  - Contusion [Not Recovered/Not Resolved]
  - Frequent bowel movements [Not Recovered/Not Resolved]
  - Sinusitis [Not Recovered/Not Resolved]
  - Abdominal distension [Not Recovered/Not Resolved]
  - Injection site pain [Not Recovered/Not Resolved]
  - Diarrhoea [Not Recovered/Not Resolved]
  - Chromaturia [Not Recovered/Not Resolved]
  - Faeces discoloured [Not Recovered/Not Resolved]
  - Injection site bruising [Not Recovered/Not Resolved]
  - Oropharyngeal pain [Recovering/Resolving]
  - Abdominal pain [Recovered/Resolved]
  - Back pain [Recovered/Resolved]
  - Rash [Recovered/Resolved]
  - Dysphonia [Recovering/Resolving]
  - Headache [Recovered/Resolved]
  - Nausea [Recovered/Resolved]
  - Contusion [Recovered/Resolved]
